FAERS Safety Report 6209028-2 (Version None)
Quarter: 2009Q2

REPORT INFORMATION
  Report Type: 
  Country: None (occurrence: None)
  Receive Date: 20090529
  Receipt Date: 20090526
  Transmission Date: 20091009
  Serious: Yes (Life-Threatening)
  Sender: FDA-Public Use
  Company Number: PHEH2009US05299

PATIENT
  Sex: Male

DRUGS (2)
  1. DIOVAN [Suspect]
  2. LIPITOR [Suspect]

REACTIONS (1)
  - HYPERSENSITIVITY [None]
